FAERS Safety Report 4549003-7 (Version None)
Quarter: 2004Q4

REPORT INFORMATION
  Report Type: 
  Country: None (occurrence: None)
  Receive Date: 20041227
  Receipt Date: 20040907
  Transmission Date: 20050328
  Serious: No
  Sender: FDA-Public Use
  Company Number: 04P-163-0272571-00

PATIENT
  Age: 86 Year
  Sex: Female
  Weight: 58.9676 kg

DRUGS (8)
  1. HUMIRA [Suspect]
     Indication: RHEUMATOID ARTHRITIS
     Dosage: 40 MG, 1 IN 2 WK, SUBCUTANEOUS
     Route: 058
     Dates: start: 20040701, end: 20040801
  2. METOPROLOL SUCCINATE [Concomitant]
  3. AMLODIPINE BESYLATE [Concomitant]
  4. CANDESARTAN CILEXETIL [Concomitant]
  5. FUROSEMIDE [Concomitant]
  6. TEMAZEPAM [Concomitant]
  7. ALPRAZOLAM [Concomitant]
  8. INFLIXIMAB [Concomitant]

REACTIONS (1)
  - MUSCLE CRAMP [None]
